FAERS Safety Report 7782050-0 (Version None)
Quarter: 2011Q3

REPORT INFORMATION
  Report Type: 
  Country: None (occurrence: None)
  Receive Date: 20110927
  Receipt Date: 20110117
  Transmission Date: 20111222
  Serious: No
  Sender: FDA-Public Use
  Company Number: US-BAYER-2011-007768

PATIENT
  Sex: Female
  Weight: 73.469 kg

DRUGS (1)
  1. ULTRAVIST 150 [Suspect]
     Indication: ANGIOGRAM
     Dosage: UNK
     Route: 042
     Dates: start: 20110118, end: 20110118

REACTIONS (2)
  - THROAT IRRITATION [None]
  - PRURITUS [None]
